FAERS Safety Report 7317997-2 (Version None)
Quarter: 2011Q1

REPORT INFORMATION
  Report Type: 
  Country: None (occurrence: None)
  Receive Date: 20110227
  Receipt Date: 20110201
  Transmission Date: 20110831
  Serious: No
  Sender: FDA-Public Use
  Company Number: US-B.I. PHARMACEUTICALS,INC./RIDGEFIELD-2011-BP-03467BP

PATIENT
  Sex: Male

DRUGS (10)
  1. PRADAXA [Suspect]
     Indication: ATRIAL FIBRILLATION
     Dosage: 300 MG
     Route: 048
     Dates: start: 20101201
  2. DILTIAZEM [Concomitant]
     Indication: CARDIAC DISORDER
  3. DIGOXIN [Concomitant]
     Indication: CARDIAC DISORDER
  4. ADVAIR DISKUS 100/50 [Concomitant]
     Indication: EMPHYSEMA
     Dates: start: 20100101
  5. ATENOLOL [Concomitant]
     Indication: CARDIAC DISORDER
  6. WELCHOL [Concomitant]
     Indication: DIARRHOEA
  7. LISINOPRIL [Concomitant]
     Indication: CARDIAC DISORDER
  8. PROAIR HFA [Concomitant]
     Indication: EMPHYSEMA
     Dates: start: 20100101
  9. SPIRIVA [Concomitant]
     Indication: EMPHYSEMA
     Route: 055
     Dates: start: 20100101
  10. RHINOCORT [Concomitant]
     Indication: RHINITIS

REACTIONS (2)
  - MEDICATION RESIDUE [None]
  - DIARRHOEA [None]
